FAERS Safety Report 4308145-1 (Version None)
Quarter: 2004Q1

REPORT INFORMATION
  Report Type: 
  Country: None (occurrence: None)
  Receive Date: 20040301
  Receipt Date: 20030612
  Transmission Date: 20041129
  Serious: No
  Sender: FDA-Public Use
  Company Number: US-BRISTOL-MYERS SQUIBB COMPANY-12300042

PATIENT
  Age: 58 Year
  Sex: Male

DRUGS (7)
  1. GLUCOPHAGE [Suspect]
     Indication: DIABETES MELLITUS
     Dosage: DURATION OF THERAPY:  ^APPROXIMATELY THIRTY DAYS^
     Route: 048
  2. ATENOLOL [Concomitant]
  3. LIPITOR [Concomitant]
  4. NABUMETONE [Concomitant]
  5. NIASPAN [Concomitant]
  6. GLUCOTROL [Concomitant]
  7. LISINOPRIL AND HYDROCHLOROTHIAZIDE [Concomitant]

REACTIONS (1)
  - MEDICATION ERROR [None]
